FAERS Safety Report 6443020-8 (Version None)
Quarter: 2009Q4

REPORT INFORMATION
  Report Type: 
  Country: None (occurrence: None)
  Receive Date: 20091117
  Receipt Date: 20091105
  Transmission Date: 20100525
  Serious: Yes (Other)
  Sender: FDA-Public Use
  Company Number: US-AMGEN-QUU373255

PATIENT
  Sex: Female

DRUGS (8)
  1. NEUPOGEN [Suspect]
     Indication: CHEMOTHERAPY
     Route: 058
     Dates: end: 20091023
  2. ZETIA [Concomitant]
  3. SEPTRA [Concomitant]
  4. CAMPATH [Concomitant]
     Dates: start: 20090810
  5. VALCYTET [Concomitant]
  6. FLUCONAZOLE [Concomitant]
  7. AMBIEN [Concomitant]
  8. VITAMINS [Concomitant]

REACTIONS (5)
  - ARTHRALGIA [None]
  - GRIP STRENGTH DECREASED [None]
  - INFLAMMATION [None]
  - MOVEMENT DISORDER [None]
  - WHITE BLOOD CELL COUNT DECREASED [None]
